FAERS Safety Report 22039117 (Version 1)
Quarter: 2023Q1

REPORT INFORMATION
  Report Type: Report from Study
  Country: ES (occurrence: ES)
  Receive Date: 20230227
  Receipt Date: 20230227
  Transmission Date: 20230417
  Serious: Yes (Other)
  Sender: FDA-Public Use
  Company Number: None

PATIENT
  Age: 77 Year
  Sex: Male

DRUGS (3)
  1. AZACITIDINE [Suspect]
     Active Substance: AZACITIDINE
     Indication: Acute myeloid leukaemia
     Dosage: 20 MILLIGRAM/SQ. METER, 7 CYCLES
  2. CYTARABINE [Suspect]
     Active Substance: CYTARABINE
     Indication: Chronic myelomonocytic leukaemia
     Dosage: AT HIGH DOSES
  3. VENETOCLAX [Suspect]
     Active Substance: VENETOCLAX
     Indication: Acute myeloid leukaemia
     Dosage: 400 MILLIGRAM, DAILY, 7 CYCLES

REACTIONS (2)
  - Neutropenia [Unknown]
  - Acute myeloid leukaemia [Unknown]
